FAERS Safety Report 4912479-7 (Version None)
Quarter: 2006Q1

REPORT INFORMATION
  Report Type: 
  Country: None (occurrence: None)
  Receive Date: 20060215
  Receipt Date: 20050428
  Transmission Date: 20060701
  Serious: No
  Sender: FDA-Public Use
  Company Number: US-GLAXOSMITHKLINE-A0556230A

PATIENT
  Sex: Female

DRUGS (4)
  1. VALACYCLOVIR HCL [Suspect]
     Dosage: 500MG TWICE PER DAY
     Route: 048
     Dates: start: 20050201
  2. NICODERM CQ [Suspect]
     Route: 062
     Dates: start: 20050427
  3. NICOTROL [Concomitant]
  4. NICODERM CQ [Concomitant]

REACTIONS (3)
  - ANXIETY [None]
  - BLOOD PRESSURE INCREASED [None]
  - FLATULENCE [None]
